FAERS Safety Report 4973309-0 (Version None)
Quarter: 2006Q2

REPORT INFORMATION
  Report Type: 
  Country: None (occurrence: None)
  Receive Date: 20060414
  Receipt Date: 20051026
  Transmission Date: 20061013
  Serious: Yes (Hospitalization)
  Sender: FDA-Public Use
  Company Number: US-MERCK-0510USA09467

PATIENT
  Age: 39 Year
  Sex: Male
  Weight: 88 kg

DRUGS (1)
  1. VIOXX [Suspect]
     Indication: ARTHRALGIA
     Route: 048
     Dates: start: 20031124, end: 20040308

REACTIONS (26)
  - ACUTE MYOCARDIAL INFARCTION [None]
  - ANGINA PECTORIS [None]
  - ANXIETY [None]
  - ARTERIOSCLEROSIS CORONARY ARTERY [None]
  - ARTHROFIBROSIS [None]
  - ARTHROPATHY [None]
  - BACK INJURY [None]
  - BONE LESION [None]
  - CHEST DISCOMFORT [None]
  - CHEST PAIN [None]
  - CORONARY ARTERY DISEASE [None]
  - CORONARY ARTERY THROMBOSIS [None]
  - DEPRESSION [None]
  - FIBROSIS [None]
  - HEADACHE [None]
  - HYPERLIPIDAEMIA [None]
  - HYPERTENSION [None]
  - LIGAMENT RUPTURE [None]
  - LUMBAR PUNCTURE HEADACHE [None]
  - MENINGITIS VIRAL [None]
  - MYOCARDIAL ISCHAEMIA [None]
  - NON-CARDIAC CHEST PAIN [None]
  - PHLEBITIS SUPERFICIAL [None]
  - PLEURITIC PAIN [None]
  - SINUS BRADYCARDIA [None]
  - THROMBOPHLEBITIS SUPERFICIAL [None]
